FAERS Safety Report 21178993 (Version 2)
Quarter: 2022Q4

REPORT INFORMATION
  Report Type: Report from Study
  Country: US (occurrence: US)
  Receive Date: 20220805
  Receipt Date: 20221128
  Transmission Date: 20230113
  Serious: Yes (Hospitalization, Other)
  Sender: FDA-Public Use
  Company Number: US-EXELIXIS-XL18422054549

PATIENT

DRUGS (3)
  1. CABOZANTINIB [Suspect]
     Active Substance: CABOZANTINIB
     Indication: Soft tissue neoplasm
     Dosage: UNK UNK, QD
     Dates: start: 20210520
  2. NIVOLUMAB [Suspect]
     Active Substance: NIVOLUMAB
     Indication: Soft tissue neoplasm
     Dosage: 480 MG, Q4WEEKS
     Dates: start: 20210520
  3. NIVOLUMAB [Suspect]
     Active Substance: NIVOLUMAB
     Dosage: 480 MG, Q4WEEKS
     Dates: start: 20220727

REACTIONS (3)
  - Acute myocardial infarction [Recovered/Resolved]
  - Dyspnoea [Unknown]
  - Pulmonary embolism [Recovered/Resolved]

NARRATIVE: CASE EVENT DATE: 20220714
